FAERS Safety Report 14519863 (Version 4)
Quarter: 2018Q2

REPORT INFORMATION
  Report Type: Report from Study
  Country: CO (occurrence: CO)
  Receive Date: 20180212
  Receipt Date: 20180412
  Transmission Date: 20180711
  Serious: Yes (Hospitalization)
  Sender: FDA-Public Use
  Company Number: PHHY2018CO020429

PATIENT
  Sex: Female
  Weight: 65 kg

DRUGS (5)
  1. INSULIN [Concomitant]
     Active Substance: INSULIN NOS
     Indication: PRODUCT USED FOR UNKNOWN INDICATION
     Route: 065
  2. LOSARTAN. [Suspect]
     Active Substance: LOSARTAN
     Indication: PRODUCT USED FOR UNKNOWN INDICATION
     Route: 065
  3. CORYOL [Suspect]
     Active Substance: CARVEDILOL
     Indication: PRODUCT USED FOR UNKNOWN INDICATION
     Route: 065
  4. SANDOSTATIN LAR DEPOT [Suspect]
     Active Substance: OCTREOTIDE ACETATE
     Indication: ACROMEGALY
     Dosage: 20 MG, QMO
     Route: 030
     Dates: start: 20150402, end: 201802
  5. LANREOTIDE [Suspect]
     Active Substance: LANREOTIDE
     Indication: ACROMEGALY
     Dosage: 120 MG, UNK
     Route: 065
     Dates: start: 201803

REACTIONS (4)
  - Gastritis [Unknown]
  - Diarrhoea [Unknown]
  - Vomiting [Unknown]
  - Malaise [Unknown]
